FAERS Safety Report 15051732 (Version 3)
Quarter: 2018Q4

REPORT INFORMATION
  Report Type: Spontaneous
  Country: US (occurrence: US)
  Receive Date: 20180622
  Receipt Date: 20181212
  Transmission Date: 20190204
  Serious: Yes (Disabling)
  Sender: FDA-Public Use
  Company Number: US-OTSUKA-2018_016172

PATIENT
  Sex: Female

DRUGS (2)
  1. ABILIFY [Suspect]
     Active Substance: ARIPIPRAZOLE
     Indication: BIPOLAR DISORDER
     Dosage: 15 MG, QD
     Route: 065
     Dates: start: 2006
  2. ABILIFY [Suspect]
     Active Substance: ARIPIPRAZOLE
     Indication: ANXIETY
     Dosage: 20 MG, QD
     Route: 065
     Dates: start: 2006, end: 2018

REACTIONS (15)
  - Economic problem [Unknown]
  - Injury [Unknown]
  - Anhedonia [Unknown]
  - Gambling disorder [Recovered/Resolved]
  - Condition aggravated [Unknown]
  - Emotional distress [Unknown]
  - Product use in unapproved indication [Unknown]
  - Theft [Unknown]
  - Shoplifting [Unknown]
  - Anxiety [Unknown]
  - Imprisonment [Unknown]
  - Disability [Unknown]
  - Pain [Unknown]
  - Compulsive sexual behaviour [Unknown]
  - Compulsive shopping [Unknown]

NARRATIVE: CASE EVENT DATE: 2006
